FAERS Safety Report 6280201-0 (Version None)
Quarter: 2009Q3

REPORT INFORMATION
  Report Type: 
  Country: None (occurrence: None)
  Receive Date: 20090723
  Receipt Date: 20090720
  Transmission Date: 20100115
  Serious: Yes (Hospitalization)
  Sender: FDA-Public Use
  Company Number: US-GILEAD-2009-0021339

PATIENT
  Sex: Female
  Weight: 32.8 kg

DRUGS (7)
  1. LETAIRIS [Suspect]
     Indication: PULMONARY ARTERIAL HYPERTENSION
     Route: 048
     Dates: start: 20081010
  2. VENTAVIS [Concomitant]
  3. REVATIO [Concomitant]
     Indication: PULMONARY ARTERIAL HYPERTENSION
  4. COUMADIN [Concomitant]
     Indication: ANTICOAGULANT THERAPY
  5. PREDNISONE TAB [Concomitant]
     Indication: STEROID THERAPY
  6. PREVACID [Concomitant]
  7. CALCIUM PLUS D [Concomitant]

REACTIONS (3)
  - CARDIOMEGALY [None]
  - NAUSEA [None]
  - PULMONARY ARTERIAL HYPERTENSION [None]
